FAERS Safety Report 10207370 (Version 1)
Quarter: 2014Q2

REPORT INFORMATION
  Report Type: Spontaneous
  Country: US (occurrence: US)
  Receive Date: 20140530
  Receipt Date: 20140530
  Transmission Date: 20141212
  Serious: No
  Sender: FDA-Public Use
  Company Number: US-GLAXOSMITHKLINE-A1038216A

PATIENT
  Sex: Male

DRUGS (6)
  1. VENTOLIN [Suspect]
     Indication: ASTHMA
     Dosage: 2PUFF AS REQUIRED
     Route: 055
  2. MONTELUKAST [Concomitant]
  3. ADVAIR DISKUS [Concomitant]
  4. COMBIVENT [Concomitant]
  5. ASTEPRO [Concomitant]
     Route: 045
  6. ALLERGY MEDICATION [Concomitant]

REACTIONS (2)
  - Breath odour [Unknown]
  - Nervousness [Unknown]
